FAERS Safety Report 20262150 (Version 2)
Quarter: 2022Q1

REPORT INFORMATION
  Report Type: Other
  Country: CH (occurrence: None)
  Receive Date: 20211231
  Receipt Date: 20220126
  Transmission Date: 20220423
  Serious: Yes (Other)
  Sender: FDA-Public Use
  Company Number: CH-ROCHE-2926107

PATIENT
  Age: 45 Year
  Sex: Male

DRUGS (2)
  1. OCREVUS [Suspect]
     Active Substance: OCRELIZUMAB
     Indication: Multiple sclerosis
     Dosage: ONGOING
     Route: 042
     Dates: start: 20210625
  2. SERTRALINE [Concomitant]
     Active Substance: SERTRALINE HYDROCHLORIDE

REACTIONS (3)
  - Optic neuritis [Recovered/Resolved]
  - Chorioretinopathy [Unknown]
  - Eye disorder [Recovered/Resolved]

NARRATIVE: CASE EVENT DATE: 20210904
